FAERS Safety Report 8341291-4 (Version None)
Quarter: 2012Q2

REPORT INFORMATION
  Report Type: 
  Country: None (occurrence: None)
  Receive Date: 20120507
  Receipt Date: 20091109
  Transmission Date: 20120825
  Serious: No
  Sender: FDA-Public Use
  Company Number: US-TEVA-2009015208

PATIENT
  Age: 61 Year
  Sex: Male
  Weight: 81.72 kg

DRUGS (4)
  1. TREANDA [Suspect]
     Route: 042
     Dates: start: 20080401
  2. TREANDA [Suspect]
     Indication: NON-HODGKIN'S LYMPHOMA
     Route: 042
     Dates: start: 20080301
  3. RITUXAN [Concomitant]
     Route: 042
     Dates: start: 20080301
  4. RITUXAN [Concomitant]
     Route: 042
     Dates: start: 20080401

REACTIONS (2)
  - COUGH [None]
  - NEUROPATHY PERIPHERAL [None]
